FAERS Safety Report 14251364 (Version 10)
Quarter: 2024Q4

REPORT INFORMATION
  Report Type: Spontaneous
  Country: HU (occurrence: HU)
  Receive Date: 20171205
  Receipt Date: 20241031
  Transmission Date: 20250115
  Serious: Yes (Life-Threatening, Other)
  Sender: NOVARTIS
  Company Number: PHHY2017HU175233

PATIENT
  Age: 49 Year
  Sex: Female

DRUGS (20)
  1. LETROZOLE [Suspect]
     Active Substance: LETROZOLE
     Indication: Breast cancer
     Dosage: UNK
     Route: 065
     Dates: start: 201306, end: 201510
  2. CAPECITABINE [Suspect]
     Active Substance: CAPECITABINE
     Indication: Product used for unknown indication
     Dosage: UNK
     Route: 065
     Dates: start: 201510, end: 201703
  3. FILGRASTIM [Suspect]
     Active Substance: FILGRASTIM
     Indication: Product used for unknown indication
     Dosage: UNK
     Route: 065
  4. FULVESTRANT [Suspect]
     Active Substance: FULVESTRANT
     Indication: Product used for unknown indication
     Dosage: UNK
     Route: 065
     Dates: start: 20170711
  5. PALBOCICLIB [Suspect]
     Active Substance: PALBOCICLIB
     Indication: Product used for unknown indication
     Dosage: 125 MG, UNK
     Route: 065
     Dates: start: 20170711, end: 20170725
  6. PALBOCICLIB [Suspect]
     Active Substance: PALBOCICLIB
     Dosage: 100 MG, UNK
     Route: 065
     Dates: start: 20170811
  7. PALBOCICLIB [Suspect]
     Active Substance: PALBOCICLIB
     Dosage: 100 MG, UNK
     Route: 065
     Dates: start: 20170926
  8. PALBOCICLIB [Suspect]
     Active Substance: PALBOCICLIB
     Dosage: 100 MG, UNK
     Route: 065
     Dates: start: 20171031
  9. PALBOCICLIB [Suspect]
     Active Substance: PALBOCICLIB
     Dosage: UNK
     Route: 065
  10. GONADORELIN [Suspect]
     Active Substance: GONADORELIN
     Indication: Product used for unknown indication
     Dosage: UNK
     Route: 065
     Dates: start: 20170711
  11. GONADORELIN [Suspect]
     Active Substance: GONADORELIN
     Dosage: 125 MG
     Route: 065
     Dates: start: 20170711, end: 20170725
  12. GONADORELIN [Suspect]
     Active Substance: GONADORELIN
     Dosage: 100 MG
     Route: 065
     Dates: start: 20171031
  13. DENOSUMAB [Suspect]
     Active Substance: DENOSUMAB
     Indication: Product used for unknown indication
     Dosage: UNK
     Route: 065
     Dates: start: 201510, end: 201703
  14. GONADORELIN [Suspect]
     Active Substance: GONADORELIN
     Indication: Product used for unknown indication
     Dosage: UNK
     Route: 065
     Dates: start: 20170711
  15. GONADORELIN [Suspect]
     Active Substance: GONADORELIN
     Dosage: 125 MG
     Route: 065
     Dates: start: 20170711, end: 20170725
  16. GONADORELIN [Suspect]
     Active Substance: GONADORELIN
     Dosage: 100 MG
     Route: 065
     Dates: start: 20171031
  17. GONADORELIN [Suspect]
     Active Substance: GONADORELIN
     Dosage: UNK
     Route: 065
  18. GONADORELIN [Suspect]
     Active Substance: GONADORELIN
     Dosage: UNK
     Route: 065
     Dates: start: 20170711
  19. GONADORELIN [Suspect]
     Active Substance: GONADORELIN
     Dosage: UNK
     Route: 065
     Dates: start: 20170711
  20. GONADORELIN [Suspect]
     Active Substance: GONADORELIN
     Dosage: UNK
     Route: 065
     Dates: start: 20170711

REACTIONS (13)
  - Radiation fibrosis - lung [Unknown]
  - Uterine disorder [Unknown]
  - Uterine enlargement [Unknown]
  - Breast cancer [Unknown]
  - Malignant neoplasm progression [Unknown]
  - Neutropenia [Unknown]
  - Vaginal haemorrhage [Unknown]
  - Carcinoembryonic antigen increased [Unknown]
  - Ovarian disorder [Unknown]
  - Metastases to bone [Unknown]
  - White blood cell count decreased [Unknown]
  - Platelet count decreased [Unknown]
  - Neoplasm progression [Unknown]

NARRATIVE: CASE EVENT DATE: 20140101
